FAERS Safety Report 8055392-1 (Version None)
Quarter: 2011Q4

REPORT INFORMATION
  Report Type: 
  Country: None (occurrence: None)
  Receive Date: 20111213
  Receipt Date: 20111104
  Transmission Date: 20120403
  Serious: No
  Sender: FDA-Public Use
  Company Number: 2011SP052124

PATIENT
  Sex: Female

DRUGS (3)
  1. INSULIN [Concomitant]
  2. GEODON [Concomitant]
  3. SAPHRIS [Suspect]
     Indication: PRODUCT USED FOR UNKNOWN INDICATION
     Dosage: 5 MG 10 MG;HS 5 MG;HS

REACTIONS (3)
  - BLOOD GLUCOSE INCREASED [None]
  - UNDERDOSE [None]
  - INAPPROPRIATE SCHEDULE OF DRUG ADMINISTRATION [None]
